FAERS Safety Report 6622749-2 (Version None)
Quarter: 2010Q1

REPORT INFORMATION
  Report Type: 
  Country: None (occurrence: None)
  Receive Date: 20100304
  Receipt Date: 20100218
  Transmission Date: 20100710
  Serious: Yes (Hospitalization)
  Sender: FDA-Public Use
  Company Number: 1000012132

PATIENT
  Age: 47 Year
  Sex: Male

DRUGS (4)
  1. ESCITALOPRAM [Suspect]
     Dosage: 20 MG (20 MG, 1 IN 1 D), ORAL
     Route: 048
     Dates: end: 20090607
  2. SERESTA [Concomitant]
  3. STILNOX [Concomitant]
  4. GAVISCON [Concomitant]

REACTIONS (11)
  - ALCOHOL USE [None]
  - CONVULSION [None]
  - DYSPHAGIA [None]
  - FALL [None]
  - FOOD INTOLERANCE [None]
  - GASTROINTESTINAL DISORDER [None]
  - HEAD INJURY [None]
  - HYPOKALAEMIA [None]
  - IATROGENIC INJURY [None]
  - INAPPROPRIATE ANTIDIURETIC HORMONE SECRETION [None]
  - VOMITING [None]
